FAERS Safety Report 6261634-5 (Version None)
Quarter: 2009Q3

REPORT INFORMATION
  Report Type: 
  Country: None (occurrence: None)
  Receive Date: 20090707
  Receipt Date: 20090707
  Transmission Date: 20100115
  Serious: Yes (Hospitalization)
  Sender: FDA-Public Use
  Company Number: None

PATIENT
  Sex: Female
  Weight: 79.1 kg

DRUGS (2)
  1. CISPLATIN [Suspect]
     Dosage: 90 MG
     Dates: end: 20090612
  2. TAXOL [Suspect]
     Dosage: 243 MG
     Dates: end: 20090612

REACTIONS (5)
  - BACTERIA URINE IDENTIFIED [None]
  - FEBRILE NEUTROPENIA [None]
  - HAEMOGLOBIN DECREASED [None]
  - HERPES SIMPLEX [None]
  - STAPHYLOCOCCAL INFECTION [None]
